FAERS Safety Report 5870692-9 (Version None)
Quarter: 2008Q3

REPORT INFORMATION
  Report Type: 
  Country: None (occurrence: None)
  Receive Date: 20080904
  Receipt Date: 20080904
  Transmission Date: 20090109
  Serious: Yes (Other)
  Sender: FDA-Public Use
  Company Number: A0745873A

PATIENT
  Age: 43 Year
  Sex: Male
  Weight: 81 kg

DRUGS (2)
  1. ALLI [Suspect]
     Indication: WEIGHT LOSS DIET
     Route: 048
     Dates: start: 20080801
  2. IBUPROFEN [Concomitant]

REACTIONS (3)
  - ANAL HAEMORRHAGE [None]
  - HAEMATOCHEZIA [None]
  - RECTAL HAEMORRHAGE [None]
